FAERS Safety Report 18722624 (Version 5)
Quarter: 2022Q2

REPORT INFORMATION
  Report Type: Spontaneous
  Country: CA (occurrence: CA)
  Receive Date: 20210111
  Receipt Date: 20220614
  Transmission Date: 20220721
  Serious: Yes (Life-Threatening, Hospitalization, Other)
  Sender: FDA-Public Use
  Company Number: CA-ASTRAZENECA-2020SF36239

PATIENT
  Age: 53 Year
  Sex: Female
  Weight: 50 kg

DRUGS (4)
  1. ATORVASTATIN [Suspect]
     Active Substance: ATORVASTATIN
     Route: 048
  2. QUETIAPINE FUMARATE [Suspect]
     Active Substance: QUETIAPINE FUMARATE
     Route: 048
  3. NALTREXONE [Suspect]
     Active Substance: NALTREXONE
     Route: 048
  4. VALPROIC ACID [Suspect]
     Active Substance: VALPROIC ACID
     Route: 048

REACTIONS (9)
  - Intentional overdose [Unknown]
  - Toxicity to various agents [Unknown]
  - Depressed level of consciousness [Recovered/Resolved]
  - Suicide attempt [Unknown]
  - Hyperammonaemia [Recovered/Resolved]
  - Somnolence [Recovered/Resolved]
  - Coma [Recovered/Resolved]
  - Drug level increased [Recovered/Resolved]
  - Anticonvulsant drug level above therapeutic [Recovered/Resolved]
